FAERS Safety Report 7773214-0 (Version None)
Quarter: 2011Q3

REPORT INFORMATION
  Report Type: 
  Country: None (occurrence: None)
  Receive Date: 20110922
  Receipt Date: 20110912
  Transmission Date: 20111222
  Serious: No
  Sender: FDA-Public Use
  Company Number: US-B.I. PHARMACEUTICALS,INC./RIDGEFIELD-2011-BP-22059BP

PATIENT
  Sex: Male

DRUGS (4)
  1. PRADAXA [Suspect]
     Indication: ATRIAL FIBRILLATION
     Dosage: 300 MG
     Route: 048
     Dates: start: 20110829
  2. MURO 128 [Concomitant]
     Indication: CATARACT OPERATION
     Dates: start: 20110728
  3. PREDNISONE [Concomitant]
     Indication: CATARACT OPERATION
     Dates: start: 20110728
  4. COMBIGAN [Concomitant]
     Indication: GLAUCOMA
     Dates: start: 20100101

REACTIONS (3)
  - DIARRHOEA [None]
  - GOUT [None]
  - HAEMORRHOIDAL HAEMORRHAGE [None]
